FAERS Safety Report 19079031 (Version 33)
Quarter: 2025Q3

REPORT INFORMATION
  Report Type: Report from Study
  Country: US (occurrence: US)
  Receive Date: 20210331
  Receipt Date: 20250819
  Transmission Date: 20251020
  Serious: Yes (Hospitalization, Other)
  Sender: TAKEDA
  Company Number: US-SHIRE-US202021951

PATIENT
  Age: 75 Year
  Sex: Female
  Weight: 54 kg

DRUGS (82)
  1. TEDUGLUTIDE [Suspect]
     Active Substance: TEDUGLUTIDE
     Indication: Short-bowel syndrome
     Dosage: UNK UNK, QD
     Dates: start: 20180207
  2. TEDUGLUTIDE [Suspect]
     Active Substance: TEDUGLUTIDE
     Dosage: 0.272 MILLILITER, QD
  3. TEDUGLUTIDE [Suspect]
     Active Substance: TEDUGLUTIDE
     Dosage: 0.272 MILLILITER, QD
  4. TEDUGLUTIDE [Suspect]
     Active Substance: TEDUGLUTIDE
     Dosage: 0.272 MILLILITER, QD
  5. TEDUGLUTIDE [Suspect]
     Active Substance: TEDUGLUTIDE
     Dosage: 2.7 MILLIGRAM
  6. TEDUGLUTIDE [Suspect]
     Active Substance: TEDUGLUTIDE
     Dosage: 2.7 MILLIGRAM
  7. TEDUGLUTIDE [Suspect]
     Active Substance: TEDUGLUTIDE
     Dosage: 2.7 MILLIGRAM
  8. TEDUGLUTIDE [Suspect]
     Active Substance: TEDUGLUTIDE
     Dosage: 2.7 MILLIGRAM, QD
  9. TEDUGLUTIDE [Suspect]
     Active Substance: TEDUGLUTIDE
     Dosage: 2.7 MILLIGRAM, QD
  10. TEDUGLUTIDE [Suspect]
     Active Substance: TEDUGLUTIDE
     Dosage: 2.7 MILLIGRAM, QD
  11. TEDUGLUTIDE [Suspect]
     Active Substance: TEDUGLUTIDE
     Dosage: 2.7 MILLIGRAM, QD
  12. TEDUGLUTIDE [Suspect]
     Active Substance: TEDUGLUTIDE
     Dosage: UNK UNK, QD
  13. TEDUGLUTIDE [Suspect]
     Active Substance: TEDUGLUTIDE
     Dosage: 2.7 MILLIGRAM, QD
  14. TEDUGLUTIDE [Suspect]
     Active Substance: TEDUGLUTIDE
     Dosage: 2.7 MILLIGRAM, QD
  15. AMINO ACIDS\DEXTROSE\ELECTROLYTES NOS\SOYBEAN OIL [Suspect]
     Active Substance: AMINO ACIDS\DEXTROSE\ELECTROLYTES NOS\SOYBEAN OIL
     Indication: Product used for unknown indication
  16. OMEPRAZOLE [Concomitant]
     Active Substance: OMEPRAZOLE
  17. FORTEO [Concomitant]
     Active Substance: TERIPARATIDE
  18. INTRALIPID [Concomitant]
     Active Substance: EGG PHOSPHOLIPIDS\GLYCERIN\SOYBEAN OIL
  19. AMIODARONE HYDROCHLORIDE [Concomitant]
     Active Substance: AMIODARONE HYDROCHLORIDE
  20. TUMS [Concomitant]
     Active Substance: CALCIUM CARBONATE
  21. DALVANCE [Concomitant]
     Active Substance: DALBAVANCIN HYDROCHLORIDE
  22. MODERNA COVID-19 VACCINE [Concomitant]
     Active Substance: ELASOMERAN
  23. TRAZODONE HCL [Concomitant]
     Active Substance: TRAZODONE HYDROCHLORIDE
  24. TIZANIDINE HYDROCHLORIDE [Concomitant]
     Active Substance: TIZANIDINE HYDROCHLORIDE
  25. PROAIR HFA [Concomitant]
     Active Substance: ALBUTEROL SULFATE
  26. ZOFRAN [Concomitant]
     Active Substance: ONDANSETRON HYDROCHLORIDE
  27. NYSTATIN\TRIAMCINOLONE [Concomitant]
     Active Substance: NYSTATIN\TRIAMCINOLONE
  28. DULOXETINE HYDROCHLORIDE [Concomitant]
     Active Substance: DULOXETINE HYDROCHLORIDE
  29. VITAMIN B12 [Concomitant]
     Active Substance: CYANOCOBALAMIN
  30. VITAMIN D3 [Concomitant]
     Active Substance: CHOLECALCIFEROL
  31. CELEBREX [Concomitant]
     Active Substance: CELECOXIB
  32. SYMBICORT [Concomitant]
     Active Substance: BUDESONIDE\FORMOTEROL FUMARATE DIHYDRATE
  33. BENADRYL [Concomitant]
     Active Substance: DIPHENHYDRAMINE HYDROCHLORIDE
  34. OXYCODONE HYDROCHLORIDE [Concomitant]
     Active Substance: OXYCODONE HYDROCHLORIDE
  35. DURAGESIC [Concomitant]
     Active Substance: FENTANYL
  36. OXYCODONE [Concomitant]
     Active Substance: OXYCODONE
  37. VANCOMYCIN HYDROCHLORIDE [Concomitant]
     Active Substance: VANCOMYCIN HYDROCHLORIDE
  38. SODIUM CHLORIDE [Concomitant]
     Active Substance: SODIUM CHLORIDE
  39. LORAZEPAM [Concomitant]
     Active Substance: LORAZEPAM
  40. ALBUTEROL [Concomitant]
     Active Substance: ALBUTEROL
  41. BUDESONIDE\FORMOTEROL [Concomitant]
     Active Substance: BUDESONIDE\FORMOTEROL
  42. CALCIUM CARBONATE [Concomitant]
     Active Substance: CALCIUM CARBONATE
     Indication: Antacid therapy
  43. CELECOXIB [Concomitant]
     Active Substance: CELECOXIB
  44. CYANOCOBALAMIN [Concomitant]
     Active Substance: CYANOCOBALAMIN
  45. DALBAVANCIN [Concomitant]
     Active Substance: DALBAVANCIN
  46. DEXTROSE [Concomitant]
     Active Substance: DEXTROSE MONOHYDRATE
  47. DICLOFENAC [Concomitant]
     Active Substance: DICLOFENAC
  48. DICYCLOMINE [Concomitant]
     Active Substance: DICYCLOMINE HYDROCHLORIDE
  49. DILTIAZEM [Concomitant]
     Active Substance: DILTIAZEM
  50. DIPHENOXYLATE HYDROCHLORIDE AND ATROPINE SULFATE [Concomitant]
     Active Substance: ATROPINE SULFATE\DIPHENOXYLATE HYDROCHLORIDE
  51. DULOXETINE [Concomitant]
     Active Substance: DULOXETINE
  52. FENTANYL [Concomitant]
     Active Substance: FENTANYL
  53. FLUTICASONE [Concomitant]
     Active Substance: FLUTICASONE
  54. GABAPENTIN [Concomitant]
     Active Substance: GABAPENTIN
  55. HEPARIN LOCK FLUSH [Concomitant]
     Active Substance: HEPARIN SODIUM
  56. IPRATROPIUM BROMIDE AND ALBUTEROL SULFATE [Concomitant]
     Active Substance: ALBUTEROL SULFATE\IPRATROPIUM BROMIDE
  57. KETOCONAZOLE [Concomitant]
     Active Substance: KETOCONAZOLE
  58. LOPERAMIDE [Concomitant]
     Active Substance: LOPERAMIDE
  59. NARCAN [Concomitant]
     Active Substance: NALOXONE HYDROCHLORIDE
  60. NYSTATIN [Concomitant]
     Active Substance: NYSTATIN
  61. OCTREOTIDE [Concomitant]
     Active Substance: OCTREOTIDE
  62. RIVAROXABAN [Concomitant]
     Active Substance: RIVAROXABAN
  63. ZOLOFT [Concomitant]
     Active Substance: SERTRALINE HYDROCHLORIDE
  64. SODIUM BICARBONATE [Concomitant]
     Active Substance: SODIUM BICARBONATE
  65. SODIUM CHLORIDE [Concomitant]
     Active Substance: SODIUM CHLORIDE
  66. AMPICILLIN [Concomitant]
     Active Substance: AMPICILLIN
  67. AMOXICILLIN\CLAVULANIC ACID [Concomitant]
     Active Substance: AMOXICILLIN\CLAVULANIC ACID
  68. PIPERACILLIN AND TAZOBACTAM [Concomitant]
     Active Substance: PIPERACILLIN SODIUM\TAZOBACTAM SODIUM
  69. CEFTAZIDIME [Concomitant]
     Active Substance: CEFTAZIDIME
  70. CEFTRIAXONE [Concomitant]
     Active Substance: CEFTRIAXONE
  71. CEFEPIME [Concomitant]
     Active Substance: CEFEPIME HYDROCHLORIDE
  72. MEROPENEM [Concomitant]
     Active Substance: MEROPENEM
  73. AMIKACIN [Concomitant]
     Active Substance: AMIKACIN
  74. GENTAMICIN [Concomitant]
     Active Substance: GENTAMICIN
  75. TOBRAMYCIN [Concomitant]
     Active Substance: TOBRAMYCIN
  76. LEVOFLOXACIN [Concomitant]
     Active Substance: LEVOFLOXACIN
  77. CEFAZOLIN [Concomitant]
     Active Substance: CEFAZOLIN
  78. TETRACYCLINE [Concomitant]
     Active Substance: TETRACYCLINE
  79. NITROFURANTOIN [Concomitant]
     Active Substance: NITROFURANTOIN
  80. SULFAMETHOXAZOLE\TRIMETHOPRIM [Concomitant]
     Active Substance: SULFAMETHOXAZOLE\TRIMETHOPRIM
  81. MICAFUNGIN [Concomitant]
     Active Substance: MICAFUNGIN SODIUM
  82. BREZTRI [Concomitant]
     Active Substance: BUDESONIDE\FORMOTEROL\GLYCOPYRROLATE

REACTIONS (20)
  - Tendon rupture [Recovered/Resolved]
  - Fungal infection [Not Recovered/Not Resolved]
  - Vascular device infection [Recovered/Resolved]
  - Staphylococcal infection [Not Recovered/Not Resolved]
  - Fistula [Not Recovered/Not Resolved]
  - Post procedural infection [Recovered/Resolved]
  - Weight decreased [Recovered/Resolved with Sequelae]
  - Injection site mass [Recovered/Resolved]
  - Needle issue [Recovered/Resolved]
  - Product dose omission issue [Recovered/Resolved]
  - Gastrointestinal stoma output increased [Recovering/Resolving]
  - Weight abnormal [Unknown]
  - Injection site pain [Recovered/Resolved]
  - Nausea [Not Recovered/Not Resolved]
  - Pyrexia [Recovered/Resolved]
  - Respiratory syncytial virus infection [Recovered/Resolved]
  - Malaise [Recovered/Resolved]
  - COVID-19 [Recovered/Resolved]
  - Insurance issue [Recovered/Resolved]
  - Product use issue [Recovered/Resolved]

NARRATIVE: CASE EVENT DATE: 20200725
